FAERS Safety Report 6531149-5 (Version None)
Quarter: 2010Q1

REPORT INFORMATION
  Report Type: 
  Country: None (occurrence: None)
  Receive Date: 20100108
  Receipt Date: 20091228
  Transmission Date: 20100710
  Serious: Yes (Hospitalization)
  Sender: FDA-Public Use
  Company Number: JP-AMGEN-US368261

PATIENT
  Sex: Female

DRUGS (10)
  1. ENBREL [Suspect]
     Indication: RHEUMATOID ARTHRITIS
     Dosage: LYOPHILIZED 50 MG/WEEKLY
     Route: 058
     Dates: start: 20080201
  2. ENBREL [Suspect]
     Route: 058
     Dates: end: 20090101
  3. PREDONINE [Concomitant]
     Route: 048
  4. RIDAURA [Concomitant]
     Route: 048
  5. MUCOSTA [Concomitant]
     Route: 048
  6. METHYCOBAL [Concomitant]
     Route: 048
  7. JUVELA [Concomitant]
     Route: 048
  8. LORCAM [Concomitant]
     Route: 048
  9. TAKEPRON [Concomitant]
     Route: 048
  10. AZULFIDINE [Concomitant]
     Route: 048

REACTIONS (1)
  - LYMPHOMA [None]
